FAERS Safety Report 4938384-8 (Version None)
Quarter: 2006Q1

REPORT INFORMATION
  Report Type: 
  Country: None (occurrence: None)
  Receive Date: 20060306
  Receipt Date: 20060221
  Transmission Date: 20060701
  Serious: Yes (Other)
  Sender: FDA-Public Use
  Company Number: US200602001268

PATIENT
  Age: 54 Year
  Sex: Male
  Weight: 80.7 kg

DRUGS (4)
  1. ZYPREXA [Suspect]
     Indication: DELUSION
     Dosage: 20 MG, EACH EVENING, ORAL
     Route: 048
     Dates: start: 20020101, end: 20051201
  2. LEXAPRO/USA/(ESCITALOPRAM) [Concomitant]
  3. WELLBUTRIN [Concomitant]
  4. XANAX/USA/(ALPRAZOLAM) [Concomitant]

REACTIONS (1)
  - ELECTROCARDIOGRAM QT PROLONGED [None]
